FAERS Safety Report 5837645-8 (Version None)
Quarter: 2008Q3

REPORT INFORMATION
  Report Type: 
  Country: None (occurrence: None)
  Receive Date: 20080807
  Receipt Date: 20080731
  Transmission Date: 20090109
  Serious: Yes (Death, Other)
  Sender: FDA-Public Use
  Company Number: PHHY2008JP14491

PATIENT
  Sex: Female

DRUGS (8)
  1. EXJADE [Suspect]
     Indication: LEUKAEMIA
     Dosage: 1125 MG
     Route: 048
     Dates: start: 20080710
  2. EXJADE [Suspect]
     Indication: IRON OVERLOAD
  3. DIFLUCAN [Concomitant]
     Dosage: 100 MG
     Route: 048
     Dates: start: 20080710, end: 20080712
  4. PREDONINE [Concomitant]
     Indication: MYELODYSPLASTIC SYNDROME
     Dosage: 20 MG
     Route: 048
     Dates: start: 20080710, end: 20080712
  5. FAMOTIDINE [Concomitant]
     Dosage: 20 MG
     Route: 048
     Dates: start: 20080710, end: 20080712
  6. SENNOSIDE [Concomitant]
     Dosage: 24 MG
     Route: 048
     Dates: start: 20080710, end: 20080712
  7. NORVASC [Concomitant]
     Dosage: 5 MG
     Route: 048
     Dates: start: 20080710, end: 20080712
  8. CYANOCOBALAMIN [Concomitant]
     Dosage: 1500 UG
     Route: 048
     Dates: start: 20080710, end: 20080712

REACTIONS (16)
  - ASPARTATE AMINOTRANSFERASE INCREASED [None]
  - BLOOD ALKALINE PHOSPHATASE INCREASED [None]
  - BLOOD BILIRUBIN INCREASED [None]
  - BLOOD CREATININE INCREASED [None]
  - BLOOD POTASSIUM INCREASED [None]
  - BLOOD PRESSURE DECREASED [None]
  - CARDIO-RESPIRATORY ARREST [None]
  - CHEST PAIN [None]
  - HEPATIC FUNCTION ABNORMAL [None]
  - LEUKAEMIC INFILTRATION EXTRAMEDULLARY [None]
  - LOSS OF CONSCIOUSNESS [None]
  - MALIGNANT NEOPLASM PROGRESSION [None]
  - OXYGEN SATURATION DECREASED [None]
  - RESPIRATORY DISORDER [None]
  - SHOCK [None]
  - WHITE BLOOD CELL COUNT INCREASED [None]
